FAERS Safety Report 16838029 (Version 1)
Quarter: 2019Q3

REPORT INFORMATION
  Report Type: Spontaneous
  Country: US (occurrence: US)
  Receive Date: 20190731
  Receipt Date: 20190731
  Transmission Date: 20191005
  Serious: No
  Sender: FDA-Public Use
  Company Number: None

PATIENT
  Age: 59 Year
  Sex: Female

DRUGS (1)
  1. AFINITOR [Suspect]
     Active Substance: EVEROLIMUS
     Dates: start: 201901

REACTIONS (4)
  - Kidney infection [None]
  - Flank pain [None]
  - Sepsis [None]
  - Renal disorder [None]

NARRATIVE: CASE EVENT DATE: 20190731
